FAERS Safety Report 8457580-9 (Version None)
Quarter: 2012Q2

REPORT INFORMATION
  Report Type: 
  Country: None (occurrence: None)
  Receive Date: 20120622
  Receipt Date: 20120615
  Transmission Date: 20120825
  Serious: Yes (Hospitalization)
  Sender: FDA-Public Use
  Company Number: US-BIOGENIDEC-2012BI014135

PATIENT
  Age: 26 Year
  Sex: Female

DRUGS (4)
  1. AVONEX [Suspect]
     Indication: MULTIPLE SCLEROSIS
     Route: 030
     Dates: start: 20060106, end: 20060421
  2. AVONEX [Suspect]
     Route: 030
     Dates: start: 20120410
  3. PROCARDIA XL [Concomitant]
  4. AVONEX [Suspect]
     Route: 030
     Dates: start: 20101202, end: 20120131

REACTIONS (8)
  - GESTATIONAL HYPERTENSION [None]
  - OVERDOSE [None]
  - PAIN [None]
  - CHILLS [None]
  - HYPOAESTHESIA [None]
  - GENERAL SYMPTOM [None]
  - HEADACHE [None]
  - HYPERHIDROSIS [None]
